FAERS Safety Report 5144448-9 (Version None)
Quarter: 2006Q4

REPORT INFORMATION
  Report Type: 
  Country: None (occurrence: None)
  Receive Date: 20061031
  Receipt Date: 20061019
  Transmission Date: 20070319
  Serious: Yes (Hospitalization)
  Sender: FDA-Public Use
  Company Number: 200617350GDDC

PATIENT
  Age: 60 Year
  Sex: Male

DRUGS (8)
  1. CISPLATIN [Suspect]
     Indication: NEOPLASM MALIGNANT
     Dosage: 100 MG/M**2/ IV
     Route: 042
     Dates: start: 20060711, end: 20060711
  2. 5-FLOUROURACIL SOLUTION FOR INFUSION [Suspect]
     Indication: NEOPLASM MALIGNANT
     Dosage: 1000 MG/M**2 IV
     Route: 042
     Dates: start: 20060711, end: 20060711
  3. DURAGESIC-100 [Concomitant]
  4. ACTIQ [Concomitant]
  5. SINOGAN [Concomitant]
  6. METAMIZOL [Concomitant]
  7. SEVREDOL IBUPROFENO [Concomitant]
  8. LYRICA [Concomitant]

REACTIONS (11)
  - COMPUTERISED TOMOGRAM ABNORMAL [None]
  - DIZZINESS [None]
  - ELECTROCARDIOGRAM QRS COMPLEX SHORTENED [None]
  - EXTRASYSTOLES [None]
  - HAEMATOCRIT DECREASED [None]
  - HAEMOGLOBIN DECREASED [None]
  - HYPERHIDROSIS [None]
  - PRESYNCOPE [None]
  - SINUS BRADYCARDIA [None]
  - VISION BLURRED [None]
  - VOMITING [None]
